FAERS Safety Report 21335595 (Version 2)
Quarter: 2022Q3

REPORT INFORMATION
  Report Type: Report from Study
  Country: UA (occurrence: None)
  Receive Date: 20220915
  Receipt Date: 20220919
  Transmission Date: 20221026
  Serious: Yes (Life-Threatening)
  Sender: FDA-Public Use
  Company Number: UA-ROCHE-3087373

PATIENT
  Age: 49 Year
  Sex: Male

DRUGS (9)
  1. ATEZOLIZUMAB [Suspect]
     Active Substance: ATEZOLIZUMAB
     Indication: Lung squamous cell carcinoma metastatic
     Dosage: START DATE OF MOST RECENT DOSE 1200 MG OF STUDY DRUG PRIOR TO AE 07-APR-2022 12:02 PM
     Route: 041
     Dates: start: 20211111
  2. TRAMADOL [Concomitant]
     Active Substance: TRAMADOL
     Indication: Spinal pain
     Route: 048
     Dates: start: 20220808
  3. SORBIFER DURULES [Concomitant]
     Indication: Anaemia
     Route: 048
     Dates: start: 20220816
  4. DEXTROSE [Concomitant]
     Active Substance: DEXTROSE
     Indication: Hyperkalaemia
     Route: 042
     Dates: start: 20220713, end: 20220715
  5. DEXTROSE [Concomitant]
     Active Substance: DEXTROSE
     Route: 042
     Dates: start: 20220608, end: 20220610
  6. INSULIN NOS [Concomitant]
     Active Substance: INSULIN NOS
     Indication: Hyperkalaemia
     Route: 042
     Dates: start: 20220608, end: 20220610
  7. INSULIN NOS [Concomitant]
     Active Substance: INSULIN NOS
     Route: 042
     Dates: start: 20220713, end: 20220715
  8. FUROSEMIDE [Concomitant]
     Active Substance: FUROSEMIDE
     Indication: Hyperkalaemia
     Route: 030
     Dates: start: 20220608, end: 20220610
  9. FUROSEMIDE [Concomitant]
     Active Substance: FUROSEMIDE
     Route: 030
     Dates: start: 20220713, end: 20220715

REACTIONS (2)
  - Hyperkalaemia [Not Recovered/Not Resolved]
  - Hypothyroidism [Recovering/Resolving]

NARRATIVE: CASE EVENT DATE: 20220426
